FAERS Safety Report 14037897 (Version 1)
Quarter: 2017Q4

REPORT INFORMATION
  Report Type: Spontaneous
  Country: US (occurrence: US)
  Receive Date: 20171004
  Receipt Date: 20171004
  Transmission Date: 20180321
  Serious: No
  Sender: FDA-Public Use
  Company Number: PHHY2017US145531

PATIENT
  Age: 37 Year
  Sex: Female

DRUGS (1)
  1. CAMBIA [Suspect]
     Active Substance: DICLOFENAC POTASSIUM
     Indication: PRODUCT USED FOR UNKNOWN INDICATION
     Dosage: 1 DF, UNK (1 PACKET WITH 1-2 OUNCES OF WATER)
     Route: 048
     Dates: start: 20170909, end: 20170913

REACTIONS (1)
  - Drug ineffective [Not Recovered/Not Resolved]
